FAERS Safety Report 21639512 (Version 9)
Quarter: 2025Q1

REPORT INFORMATION
  Report Type: Report from Study
  Country: US (occurrence: US)
  Receive Date: 20221124
  Receipt Date: 20250311
  Transmission Date: 20250409
  Serious: Yes (Hospitalization, Other)
  Sender: TAKEDA
  Company Number: US-TAKEDA-US201502588

PATIENT
  Age: 9 Year
  Sex: Male
  Weight: 40.36 kg

DRUGS (17)
  1. IDURSULFASE [Suspect]
     Active Substance: IDURSULFASE
     Indication: Mucopolysaccharidosis
     Dosage: 22 MILLIGRAM, 1/WEEK
     Dates: start: 20101021
  2. IDURSULFASE [Suspect]
     Active Substance: IDURSULFASE
     Indication: Mucopolysaccharidosis II
     Dosage: 42 MILLIGRAM, 1/WEEK
     Dates: start: 20110316
  3. ACETAMINOPHEN [Concomitant]
     Active Substance: ACETAMINOPHEN
     Indication: Product used for unknown indication
  4. DIPHENHYDRAMINE [Concomitant]
     Active Substance: DIPHENHYDRAMINE
     Indication: Product used for unknown indication
  5. HEPARIN [Concomitant]
     Active Substance: HEPARIN SODIUM
     Indication: Product used for unknown indication
  6. METHYLPREDNISOLONE [Concomitant]
     Active Substance: METHYLPREDNISOLONE
     Indication: Product used for unknown indication
  7. SODIUM CHLORIDE [Concomitant]
     Active Substance: SODIUM CHLORIDE
     Indication: Product used for unknown indication
  8. SODIUM CHLORIDE [Concomitant]
     Active Substance: SODIUM CHLORIDE
     Indication: Product used for unknown indication
  9. EPIPEN [Concomitant]
     Active Substance: EPINEPHRINE
     Indication: Product used for unknown indication
  10. Lmx [Concomitant]
     Indication: Product used for unknown indication
  11. CUVPOSA [Concomitant]
     Active Substance: GLYCOPYRROLATE
  12. EPINEPHRINE [Concomitant]
     Active Substance: EPINEPHRINE
  13. SOLU-MEDROL [Concomitant]
     Active Substance: METHYLPREDNISOLONE SODIUM SUCCINATE
  14. FAMOTIDINE [Concomitant]
     Active Substance: FAMOTIDINE
  15. LIDOCAINE [Concomitant]
     Active Substance: LIDOCAINE
     Indication: Mucopolysaccharidosis
  16. DIPHENHYDRAMINE HYDROCHLORIDE [Concomitant]
     Active Substance: DIPHENHYDRAMINE HYDROCHLORIDE
  17. METHYLPREDNISOLONE ACETATE [Concomitant]
     Active Substance: METHYLPREDNISOLONE ACETATE

REACTIONS (9)
  - Vascular device infection [Unknown]
  - Product availability issue [Unknown]
  - Feeling abnormal [Unknown]
  - Product dose omission issue [Unknown]
  - Catheter site haemorrhage [Unknown]
  - Device dislocation [Unknown]
  - Cognitive disorder [Unknown]
  - Poor venous access [Unknown]
  - Device malfunction [Unknown]

NARRATIVE: CASE EVENT DATE: 20150319
